FAERS Safety Report 25338337 (Version 1)
Quarter: 2025Q2

REPORT INFORMATION
  Report Type: Spontaneous
  Country: US (occurrence: US)
  Receive Date: 20250520
  Receipt Date: 20250520
  Transmission Date: 20250716
  Serious: No
  Sender: SANOFI AVENTIS
  Company Number: US-SA-2025SA143602

PATIENT
  Sex: Female
  Weight: 144 kg

DRUGS (18)
  1. DUPIXENT [Suspect]
     Active Substance: DUPILUMAB
     Indication: Dermatitis atopic
     Dosage: 300 MG, QOW
     Route: 058
  2. OMEPRAZOLE [Concomitant]
     Active Substance: OMEPRAZOLE
  3. ATORVASTATIN CALCIUM [Concomitant]
     Active Substance: ATORVASTATIN CALCIUM
  4. TRELEGY ELLIPTA [Concomitant]
     Active Substance: FLUTICASONE FUROATE\UMECLIDINIUM BROMIDE\VILANTEROL TRIFENATATE
  5. CLONAZEPAM [Concomitant]
     Active Substance: CLONAZEPAM
  6. ESTRADIOL [Concomitant]
     Active Substance: ESTRADIOL
  7. SERTRALINE [Concomitant]
     Active Substance: SERTRALINE HYDROCHLORIDE
  8. HYDROXYZINE [Concomitant]
     Active Substance: HYDROXYZINE HYDROCHLORIDE
  9. QUETIAPINE FUMARATE [Concomitant]
     Active Substance: QUETIAPINE FUMARATE
  10. DICYCLOMINE [Concomitant]
     Active Substance: DICYCLOMINE HYDROCHLORIDE
  11. METOPROLOL TARTRATE [Concomitant]
     Active Substance: METOPROLOL TARTRATE
  12. RAMELTEON [Concomitant]
     Active Substance: RAMELTEON
  13. CLONIDINE [Concomitant]
     Active Substance: CLONIDINE
  14. PROPRANOLOL [Concomitant]
     Active Substance: PROPRANOLOL HYDROCHLORIDE
  15. FOLIC ACID [Concomitant]
     Active Substance: FOLIC ACID
  16. PRIMIDONE [Concomitant]
     Active Substance: PRIMIDONE
  17. LEVOTHYROXINE SODIUM [Concomitant]
     Active Substance: LEVOTHYROXINE SODIUM
  18. DOTTI [Concomitant]
     Active Substance: ESTRADIOL

REACTIONS (7)
  - Weight decreased [Unknown]
  - Sleep disorder [Unknown]
  - Anxiety disorder [Unknown]
  - Cough [Unknown]
  - Oropharyngeal discomfort [Unknown]
  - Lung disorder [Unknown]
  - Arthralgia [Unknown]
